FAERS Safety Report 6532143-0 (Version None)
Quarter: 2010Q1

REPORT INFORMATION
  Report Type: 
  Country: None (occurrence: None)
  Receive Date: 20100108
  Receipt Date: 20091231
  Transmission Date: 20100710
  Serious: Yes (Hospitalization)
  Sender: FDA-Public Use
  Company Number: CHPA2009US24193

PATIENT
  Age: 9 Year
  Sex: Female

DRUGS (3)
  1. TRIAMINIC THIN STRIPS UNKNOWN (NCH) [Suspect]
     Indication: NASAL CONGESTION
     Dosage: 1 DF, ONCE/SINGLE
     Route: 048
     Dates: start: 20091110, end: 20091110
  2. TRIAMINIC THIN STRIPS UNKNOWN (NCH) [Suspect]
     Indication: PYREXIA
  3. TYLENOL (CAPLET) [Suspect]
     Indication: PYREXIA
     Dates: start: 20091101

REACTIONS (5)
  - ABNORMAL BEHAVIOUR [None]
  - HALLUCINATION [None]
  - HALLUCINATION, AUDITORY [None]
  - NIGHTMARE [None]
  - SLEEP TERROR [None]
